FAERS Safety Report 17848380 (Version 1)
Quarter: 2020Q2

REPORT INFORMATION
  Report Type: Spontaneous
  Country: US (occurrence: US)
  Receive Date: 20200602
  Receipt Date: 20200602
  Transmission Date: 20200714
  Serious: Yes (Hospitalization)
  Sender: FDA-Public Use
  Company Number: US-TEVA-2020-US-1242223

PATIENT
  Age: 68 Year
  Sex: Male

DRUGS (9)
  1. NADOLOL. [Concomitant]
     Active Substance: NADOLOL
     Dosage: 40 MILLIGRAM DAILY;
     Route: 065
  2. WARFARIN [Concomitant]
     Active Substance: WARFARIN
     Indication: GASTROINTESTINAL HAEMORRHAGE
     Route: 065
  3. PANTOPRAZOLE [Concomitant]
     Active Substance: PANTOPRAZOLE
     Dosage: 80 MILLIGRAM DAILY;
     Route: 065
  4. BISACODYL. [Concomitant]
     Active Substance: BISACODYL
     Dosage: 5 MILLIGRAM DAILY;
     Route: 065
  5. ROSUVASTATIN. [Interacting]
     Active Substance: ROSUVASTATIN
     Dosage: 40 MILLIGRAM DAILY; HE HAD BEEN ON ROSUVASTATIN FOR AT LEAST 8 YEARS
     Route: 065
  6. SODIUM DOCUSATE [Concomitant]
     Active Substance: DOCUSATE SODIUM
     Dosage: 200 MILLIGRAM DAILY;
     Route: 065
  7. DANAZOL. [Suspect]
     Active Substance: DANAZOL
     Indication: GASTROINTESTINAL HAEMORRHAGE
     Dosage: 200 MILLIGRAM DAILY; AND INCREASED
     Route: 065
  8. DANAZOL. [Interacting]
     Active Substance: DANAZOL
     Dosage: 400 MILLIGRAM DAILY;
     Route: 065
  9. OCTREOTIDE. [Suspect]
     Active Substance: OCTREOTIDE
     Indication: GASTROINTESTINAL HAEMORRHAGE
     Route: 058

REACTIONS (3)
  - Drug interaction [Recovering/Resolving]
  - Rhabdomyolysis [Recovering/Resolving]
  - Treatment failure [Unknown]
